FAERS Safety Report 8202048-8 (Version None)
Quarter: 2012Q1

REPORT INFORMATION
  Report Type: 
  Country: None (occurrence: None)
  Receive Date: 20120227
  Receipt Date: 20111208
  Transmission Date: 20120608
  Serious: No
  Sender: FDA-Public Use
  Company Number: 341070

PATIENT
  Age: 42 Year
  Sex: Male

DRUGS (2)
  1. DILANTIN /00017401/ (PHENYTOIN) [Concomitant]
  2. VICTOZA [Suspect]
     Indication: TYPE 2 DIABETES MELLITUS
     Dosage: SUBCUTANEOUS
     Route: 058

REACTIONS (1)
  - ANTICONVULSANT DRUG LEVEL ABNORMAL [None]
